FAERS Safety Report 19572841 (Version 1)
Quarter: 2021Q3

REPORT INFORMATION
  Report Type: Spontaneous
  Country: LU (occurrence: LU)
  Receive Date: 20210716
  Receipt Date: 20210716
  Transmission Date: 20211014
  Serious: Yes (Death)
  Sender: FDA-Public Use
  Company Number: LU-TEVA-2021-LU-1932439

PATIENT
  Age: 61 Year
  Sex: Female
  Weight: 44.7 kg

DRUGS (3)
  1. CISPLATINE [Suspect]
     Active Substance: CISPLATIN
     Indication: ANAL CANCER
     Dosage: 100MG/M2
     Route: 042
     Dates: start: 20210528, end: 20210528
  2. FLUOROURACILE [Suspect]
     Active Substance: FLUOROURACIL
     Indication: ANAL CANCER
     Dosage: 100MG/M2
     Route: 042
     Dates: start: 20210528, end: 20210528
  3. KEYTRUDA [Suspect]
     Active Substance: PEMBROLIZUMAB
     Indication: ANAL CANCER
     Dosage: 200MG
     Route: 042
     Dates: start: 20210528, end: 20210528

REACTIONS (1)
  - Hepatitis fulminant [Fatal]

NARRATIVE: CASE EVENT DATE: 20210518
